FAERS Safety Report 4774989-5 (Version None)
Quarter: 2005Q3

REPORT INFORMATION
  Report Type: 
  Country: None (occurrence: None)
  Receive Date: 20050920
  Receipt Date: 20050830
  Transmission Date: 20060218
  Serious: Yes (Death, Life-Threatening, Hospitalization)
  Sender: FDA-Public Use
  Company Number: CLOF-10096

PATIENT
  Age: 73 Year
  Sex: Male

DRUGS (1)
  1. CLOFARABINE [Suspect]
     Indication: ACUTE MYELOID LEUKAEMIA
     Dosage: 30MG/M2 QD X 5 IV
     Route: 042
     Dates: start: 20050810, end: 20050814

REACTIONS (9)
  - ABDOMINAL DISTENSION [None]
  - CEREBRAL HAEMORRHAGE [None]
  - ILEUS [None]
  - LOWER RESPIRATORY TRACT INFECTION [None]
  - NEUTROPHIL COUNT DECREASED [None]
  - OBSTRUCTION [None]
  - PITUITARY TUMOUR [None]
  - THERAPY NON-RESPONDER [None]
  - WHITE BLOOD CELL COUNT DECREASED [None]
